FAERS Safety Report 7713460-5 (Version None)
Quarter: 2011Q3

REPORT INFORMATION
  Report Type: 
  Country: None (occurrence: None)
  Receive Date: 20110826
  Receipt Date: 20110822
  Transmission Date: 20111222
  Serious: Yes (Congenital Anomaly, Other)
  Sender: FDA-Public Use
  Company Number: US-PFIZER INC-2011195006

PATIENT
  Sex: Female

DRUGS (2)
  1. ZOLOFT [Suspect]
     Indication: DEPRESSION
     Dosage: SAMPLE PACK
     Route: 064
  2. ZOLOFT [Suspect]
     Indication: SUICIDAL IDEATION

REACTIONS (3)
  - MATERNAL EXPOSURE DURING PREGNANCY [None]
  - LIMB MALFORMATION [None]
  - HYPERACUSIS [None]
